FAERS Safety Report 5249587-X (Version None)
Quarter: 2007Q1

REPORT INFORMATION
  Report Type: 
  Country: None (occurrence: None)
  Receive Date: 20070228
  Receipt Date: 20060525
  Transmission Date: 20070707
  Serious: No
  Sender: FDA-Public Use
  Company Number: US-GLAXOSMITHKLINE-A0599333A

PATIENT
  Age: 55 Year
  Sex: Female

DRUGS (10)
  1. IMITREX [Suspect]
     Indication: MIGRAINE
     Dosage: 6MG AS REQUIRED
     Route: 058
     Dates: start: 19930101
  2. AMERGE [Concomitant]
  3. ESTRACE [Concomitant]
  4. SYNTHROID [Concomitant]
  5. LIPITOR [Concomitant]
  6. EFFEXOR [Concomitant]
  7. NADOLOL [Concomitant]
  8. NABUMETONE [Concomitant]
  9. ESGIC [Concomitant]
  10. ASPIRIN [Concomitant]

REACTIONS (3)
  - DRUG INEFFECTIVE [None]
  - INJECTION SITE PAIN [None]
  - PHARMACEUTICAL PRODUCT COMPLAINT [None]
